FAERS Safety Report 7148675-0 (Version None)
Quarter: 2010Q4

REPORT INFORMATION
  Report Type: 
  Country: None (occurrence: None)
  Receive Date: 20101122
  Receipt Date: 20101115
  Transmission Date: 20110411
  Serious: Yes (Hospitalization, Other)
  Sender: FDA-Public Use
  Company Number: 2010SP057817

PATIENT
  Age: 36 Year
  Sex: Female
  Weight: 77 kg

DRUGS (2)
  1. IMPLANON [Suspect]
     Indication: CONTRACEPTION
     Dosage: 1 DF; 1 DF; SC
     Route: 058
     Dates: start: 20090219, end: 20101029
  2. IMPLANON [Suspect]

REACTIONS (5)
  - ANAEMIA [None]
  - DRUG EXPOSURE DURING PREGNANCY [None]
  - PERITONEAL HAEMORRHAGE [None]
  - PREGNANCY WITH IMPLANT CONTRACEPTIVE [None]
  - RUPTURED ECTOPIC PREGNANCY [None]
